FAERS Safety Report 23397682 (Version 5)
Quarter: 2024Q1

REPORT INFORMATION
  Report Type: Spontaneous
  Country: US (occurrence: US)
  Receive Date: 20240112
  Receipt Date: 20240320
  Transmission Date: 20240409
  Serious: No
  Sender: FDA-Public Use
  Company Number: US-PFIZER INC-202400004179

PATIENT
  Age: 12 Year
  Sex: Male

DRUGS (2)
  1. GENOTROPIN [Suspect]
     Active Substance: SOMATROPIN
     Indication: Growth hormone deficiency
     Dosage: 0.9 MG, ONE DAILY AT BED TIME
     Dates: start: 20240102
  2. GENOTROPIN [Suspect]
     Active Substance: SOMATROPIN
     Dosage: UNK

REACTIONS (5)
  - Ear infection [Unknown]
  - Conjunctivitis [Unknown]
  - Injection site haemorrhage [Unknown]
  - Exposure to contaminated device [Unknown]
  - Product contamination [Unknown]

NARRATIVE: CASE EVENT DATE: 20240101
